FAERS Safety Report 5472691-8 (Version None)
Quarter: 2007Q4

REPORT INFORMATION
  Report Type: 
  Country: None (occurrence: None)
  Receive Date: 20071001
  Receipt Date: 20061016
  Transmission Date: 20080405
  Serious: Yes (Other)
  Sender: FDA-Public Use
  Company Number: US-ASTRAZENECA-2006UW19235

PATIENT
  Age: 44 Year
  Sex: Female
  Weight: 59 kg

DRUGS (8)
  1. ARIMIDEX [Suspect]
     Indication: BREAST CANCER
     Route: 048
     Dates: start: 20020101
  2. EFFEXOR XR [Concomitant]
  3. PREVACID [Concomitant]
  4. KEPPRA [Concomitant]
  5. AGGRENOX [Concomitant]
     Dosage: 200/25 MG
  6. POTASSIUM CHLORIDE [Concomitant]
  7. OXYCONTIN [Concomitant]
  8. PERCOCET [Concomitant]

REACTIONS (1)
  - LYMPHOEDEMA [None]
